FAERS Safety Report 23894299 (Version 2)
Quarter: 2024Q2

REPORT INFORMATION
  Report Type: Spontaneous
  Country: US (occurrence: US)
  Receive Date: 20240524
  Receipt Date: 20240611
  Transmission Date: 20240715
  Serious: No
  Sender: FDA-Public Use
  Company Number: US-AMGEN-USASP2024100281

PATIENT
  Age: 41 Year
  Sex: Female

DRUGS (17)
  1. AIMOVIG [Suspect]
     Active Substance: ERENUMAB-AOOE
     Indication: Migraine
     Dosage: 70 MILLIGRAM, QMO
     Route: 058
     Dates: start: 2023
  2. AIMOVIG [Suspect]
     Active Substance: ERENUMAB-AOOE
     Dosage: 140 MILLIGRAM, QMO
     Route: 058
  3. LEVOTHYROXINE [Concomitant]
     Active Substance: LEVOTHYROXINE\LEVOTHYROXINE SODIUM
     Indication: Thyroid disorder
     Dosage: 175 MILLIGRAM, QD
     Route: 058
     Dates: start: 2009
  4. OMEPRAZOLE [Concomitant]
     Active Substance: DONEPEZIL HYDROCHLORIDE\OMEPRAZOLE\OMEPRAZOLE MAGNESIUM
     Indication: Blood cholesterol
     Dosage: 40 MILLIGRAM, QD
     Route: 065
     Dates: start: 2017
  5. OMEPRAZOLE [Concomitant]
     Active Substance: DONEPEZIL HYDROCHLORIDE\OMEPRAZOLE\OMEPRAZOLE MAGNESIUM
     Indication: Gastrooesophageal reflux disease
  6. VIMPAT [Concomitant]
     Active Substance: LACOSAMIDE
     Indication: Bipolar disorder
     Dosage: 150 MILLIGRAM, QD
     Route: 065
     Dates: start: 2019
  7. VIMPAT [Concomitant]
     Active Substance: LACOSAMIDE
     Indication: Migraine
  8. SIMVASTATIN [Concomitant]
     Active Substance: SIMVASTATIN
     Indication: Blood cholesterol
     Dosage: 200 MILLIGRAM, QD
     Route: 065
     Dates: start: 2019
  9. SIMVASTATIN [Concomitant]
     Active Substance: SIMVASTATIN
     Indication: Gastrooesophageal reflux disease
  10. UBRELVY [Concomitant]
     Active Substance: UBROGEPANT
     Indication: Migraine
     Dosage: 100 MILLIGRAM ^AS NEEDED^
     Dates: start: 2023
  11. PROMETHAZINE [Concomitant]
     Active Substance: PROMETHAZINE HYDROCHLORIDE
     Indication: Vomiting
     Dosage: 25 MILLIGRAM ^AS NEEDED^
     Route: 065
     Dates: start: 2022
  12. TIZANIDINE [Concomitant]
     Active Substance: TIZANIDINE
     Indication: Muscle relaxant therapy
     Dosage: 4 MILLIGRAM, QD, TAKING FOR A YEAR, STOP TAKING IT AND BACK IN THE MED FOR 6 MONTH
     Route: 065
  13. TERAZOSIN HYDROCHLORIDE [Concomitant]
     Active Substance: TERAZOSIN HYDROCHLORIDE
     Indication: Nightmare
     Dosage: 2 MILLIGRAM, QD
     Route: 065
     Dates: start: 2023
  14. DESVENLAFAXINE [Concomitant]
     Active Substance: DESVENLAFAXINE
     Indication: Mood swings
     Dosage: 50 MILLIGRAM, QD
     Dates: start: 202405
  15. DESVENLAFAXINE [Concomitant]
     Active Substance: DESVENLAFAXINE
     Indication: Bipolar disorder
  16. ALBUTEROL [Concomitant]
     Active Substance: ALBUTEROL
     Indication: Asthma
     Dosage: 9 MILLIGRAM, ^AS NEEDED^
     Dates: start: 1986
  17. VRAYLAR [Concomitant]
     Active Substance: CARIPRAZINE
     Indication: Bipolar disorder
     Dosage: 1.5 MILLIGRAM, QD
     Dates: start: 202405

REACTIONS (5)
  - Migraine [Not Recovered/Not Resolved]
  - Eye disorder [Not Recovered/Not Resolved]
  - Device difficult to use [Unknown]
  - Drug dose omission by device [Unknown]
  - Wrong technique in product usage process [Unknown]

NARRATIVE: CASE EVENT DATE: 20240101
